FAERS Safety Report 16060180 (Version 1)
Quarter: 2019Q1

REPORT INFORMATION
  Report Type: Spontaneous
  Country: KR (occurrence: KR)
  Receive Date: 20190312
  Receipt Date: 20190312
  Transmission Date: 20190418
  Serious: Yes (Other)
  Sender: FDA-Public Use
  Company Number: KR-SUN PHARMACEUTICAL INDUSTRIES LTD-2019RR-201423

PATIENT
  Age: 59 Year
  Sex: Female

DRUGS (8)
  1. CARBOPLATIN. [Suspect]
     Active Substance: CARBOPLATIN
     Indication: METASTASES TO PERITONEUM
     Dosage: GEMC
     Route: 065
  2. TAXOL [Suspect]
     Active Substance: PACLITAXEL
     Indication: METASTASES TO PERITONEUM
     Dosage: UNK
     Route: 065
  3. GEMCITABINE [Suspect]
     Active Substance: GEMCITABINE\GEMCITABINE HYDROCHLORIDE
     Indication: METASTASES TO PERITONEUM
     Route: 065
  4. BEVACIZUMAB. [Suspect]
     Active Substance: BEVACIZUMAB
     Indication: METASTASES TO PERITONEUM
     Route: 065
  5. PEGLYLATED LIPOSOMAL DOXORUBICIN [Suspect]
     Active Substance: DOXORUBICIN
     Indication: METASTASES TO PERITONEUM
     Route: 065
  6. CARBOPLATIN. [Suspect]
     Active Substance: CARBOPLATIN
     Indication: OVARIAN CANCER
     Dosage: AS TC REGIMEN
     Route: 065
  7. CARBOPLATIN. [Suspect]
     Active Substance: CARBOPLATIN
     Dosage: UNK
     Route: 065
  8. TAXOL [Suspect]
     Active Substance: PACLITAXEL
     Indication: OVARIAN CANCER
     Dosage: AS TC REGIMEN
     Route: 065

REACTIONS (3)
  - Disease recurrence [Unknown]
  - Acute myeloid leukaemia [Unknown]
  - Metastases to peritoneum [Unknown]
